FAERS Safety Report 19265944 (Version 1)
Quarter: 2021Q2

REPORT INFORMATION
  Report Type: Report from Study
  Country: IN (occurrence: IN)
  Receive Date: 20210517
  Receipt Date: 20210517
  Transmission Date: 20210717
  Serious: Yes (Death)
  Sender: FDA-Public Use
  Company Number: NVSC2021IN017469

PATIENT
  Age: 52 Year
  Sex: Male

DRUGS (1)
  1. VYMADA [Suspect]
     Active Substance: SACUBITRIL\VALSARTAN
     Indication: CARDIAC FAILURE CHRONIC
     Dosage: 1/2 TABLET OD IN MORNING AND 100 MG FULL OD IN EVENING
     Route: 048
     Dates: start: 20201209

REACTIONS (2)
  - Death [Fatal]
  - Wrong technique in product usage process [Unknown]

NARRATIVE: CASE EVENT DATE: 20201209
